FAERS Safety Report 20948011 (Version 1)
Quarter: 2022Q2

REPORT INFORMATION
  Report Type: Spontaneous
  Country: BR (occurrence: BR)
  Receive Date: 20220611
  Receipt Date: 20220611
  Transmission Date: 20220720
  Serious: Yes (Other)
  Sender: FDA-Public Use
  Company Number: BR-TEVA-2022-BR-2044342

PATIENT
  Age: 67 Year
  Sex: Female
  Weight: 50 kg

DRUGS (4)
  1. CARBOPLATIN [Suspect]
     Active Substance: CARBOPLATIN
     Indication: Metastases to ovary
     Dosage: 272.361 MILLIGRAM (MG) / 4 AUC
     Route: 042
     Dates: start: 20211109, end: 20220504
  2. CARBOPLATIN [Suspect]
     Active Substance: CARBOPLATIN
     Indication: Breast cancer
  3. AVASTIN [Concomitant]
     Active Substance: BEVACIZUMAB
     Route: 042
     Dates: start: 20220413
  4. PACLITAXEL [Concomitant]
     Active Substance: PACLITAXEL
     Route: 042
     Dates: start: 20211109

REACTIONS (6)
  - Anaphylactic reaction [Recovered/Resolved]
  - Rash [Recovered/Resolved]
  - Dyspnoea [Recovered/Resolved]
  - Oxygen saturation decreased [Recovered/Resolved]
  - Wheezing [Recovered/Resolved]
  - Infusion related reaction [Unknown]

NARRATIVE: CASE EVENT DATE: 20220504
